FAERS Safety Report 15649860 (Version 7)
Quarter: 2018Q4

REPORT INFORMATION
  Report Type: Report from Study
  Country: BR (occurrence: BR)
  Receive Date: 20181123
  Receipt Date: 20181225
  Transmission Date: 20190205
  Serious: Yes (Other)
  Sender: FDA-Public Use
  Company Number: PHHY2018BR150977

PATIENT
  Age: 57 Year
  Sex: Male
  Weight: 95 kg

DRUGS (7)
  1. LOSARTAN. [Suspect]
     Active Substance: LOSARTAN
     Indication: PRODUCT USED FOR UNKNOWN INDICATION
     Route: 065
  2. CAPTOPRIL. [Suspect]
     Active Substance: CAPTOPRIL
     Indication: PRODUCT USED FOR UNKNOWN INDICATION
     Route: 065
  3. COSENTYX [Suspect]
     Active Substance: SECUKINUMAB
     Dosage: 300 MG, QMO
     Route: 058
     Dates: start: 20181015
  4. COSENTYX [Suspect]
     Active Substance: SECUKINUMAB
     Indication: PSORIATIC ARTHROPATHY
     Dosage: 300 MG, QW
     Route: 058
     Dates: start: 20180515
  5. COSENTYX [Suspect]
     Active Substance: SECUKINUMAB
     Dosage: 300 MG, QMO
     Route: 058
  6. METHOTREXATE. [Suspect]
     Active Substance: METHOTREXATE
     Indication: PRODUCT USED FOR UNKNOWN INDICATION
     Route: 065
  7. COSENTYX [Suspect]
     Active Substance: SECUKINUMAB
     Dosage: 300 MG, QMO
     Route: 058
     Dates: start: 20181114

REACTIONS (27)
  - Ligament rupture [Not Recovered/Not Resolved]
  - Pain [Not Recovered/Not Resolved]
  - Joint dislocation [Not Recovered/Not Resolved]
  - Concomitant disease aggravated [Not Recovered/Not Resolved]
  - Malaise [Unknown]
  - Drug ineffective [Unknown]
  - Chills [Not Recovered/Not Resolved]
  - Purulence [Unknown]
  - Infection [Unknown]
  - Visual impairment [Not Recovered/Not Resolved]
  - Rib fracture [Unknown]
  - Joint swelling [Not Recovered/Not Resolved]
  - Musculoskeletal pain [Not Recovered/Not Resolved]
  - Sleep disorder [Not Recovered/Not Resolved]
  - Arthritis [Not Recovered/Not Resolved]
  - Arthralgia [Not Recovered/Not Resolved]
  - Gait disturbance [Not Recovered/Not Resolved]
  - Tendon injury [Not Recovered/Not Resolved]
  - Peripheral swelling [Unknown]
  - Gout [Not Recovered/Not Resolved]
  - Limb injury [Unknown]
  - Neoplasm [Not Recovered/Not Resolved]
  - Glaucoma [Unknown]
  - Drug resistance [Not Recovered/Not Resolved]
  - Fall [Unknown]
  - Pain in extremity [Not Recovered/Not Resolved]
  - Blood pressure inadequately controlled [Not Recovered/Not Resolved]

NARRATIVE: CASE EVENT DATE: 201805
